FAERS Safety Report 9576833 (Version 4)
Quarter: 2014Q1

REPORT INFORMATION
  Report Type: Report from Study
  Country: NL (occurrence: NL)
  Receive Date: 20131001
  Receipt Date: 20140306
  Transmission Date: 20141002
  Serious: Yes (Death)
  Sender: FDA-Public Use
  Company Number: NL-BAXTER-2013BAX037495

PATIENT
  Sex: Male

DRUGS (6)
  1. KIOVIG 100 MG/ML OPLOSSING VOOR INFUSIE (10 G/100 ML) [Suspect]
     Indication: HYPOGAMMAGLOBULINAEMIA
     Route: 042
     Dates: start: 20130515
  2. KIOVIG 100 MG/ML OPLOSSING VOOR INFUSIE (10 G/100 ML) [Suspect]
     Indication: INFECTION
     Route: 042
     Dates: start: 20130613
  3. KIOVIG 100 MG/ML OPLOSSING VOOR INFUSIE (10 G/100 ML) [Suspect]
     Route: 042
     Dates: start: 20130221
  4. KIOVIG 100 MG/ML OPLOSSING VOOR INFUSIE (5 G/50 ML) [Suspect]
     Indication: HYPOGAMMAGLOBULINAEMIA
     Route: 042
     Dates: start: 20130515
  5. KIOVIG 100 MG/ML OPLOSSING VOOR INFUSIE (5 G/50 ML) [Suspect]
     Route: 042
     Dates: start: 20130613
  6. KIOVIG 100 MG/ML OPLOSSING VOOR INFUSIE (5 G/50 ML) [Suspect]
     Route: 042
     Dates: start: 20130221

REACTIONS (1)
  - Death [Fatal]
